FAERS Safety Report 11380640 (Version 1)
Quarter: 2015Q3

REPORT INFORMATION
  Report Type: Spontaneous
  Country: US (occurrence: US)
  Receive Date: 20150814
  Receipt Date: 20150814
  Transmission Date: 20151125
  Serious: No
  Sender: FDA-Public Use
  Company Number: US-JNJFOC-20150805304

PATIENT
  Sex: Female
  Weight: 46.27 kg

DRUGS (1)
  1. PANCREASE MT [Suspect]
     Active Substance: PANCRELIPASE
     Indication: CYSTIC FIBROSIS
     Dosage: 3-5 CAPSULES THROUGHOUT THE DAY
     Route: 048

REACTIONS (1)
  - Drug dose omission [Not Recovered/Not Resolved]

NARRATIVE: CASE EVENT DATE: 2015
